FAERS Safety Report 17338550 (Version 1)
Quarter: 2020Q1

REPORT INFORMATION
  Report Type: Report from Study
  Country: CA (occurrence: CA)
  Receive Date: 20200129
  Receipt Date: 20200129
  Transmission Date: 20200409
  Serious: Yes (Other)
  Sender: FDA-Public Use
  Company Number: CA-ROCHE-2224086

PATIENT
  Age: 78 Year
  Sex: Female

DRUGS (11)
  1. PLAQUENIL [Suspect]
     Active Substance: HYDROXYCHLOROQUINE SULFATE
     Indication: PRODUCT USED FOR UNKNOWN INDICATION
     Route: 065
  2. HYDROXYCHLOROQUINE [Concomitant]
     Active Substance: HYDROXYCHLOROQUINE
     Dosage: ALTERNATING WITH 200 MG ORAL ONCE DAILY
     Route: 048
  3. DIPHENHYDRAMINE HCL [Concomitant]
     Active Substance: DIPHENHYDRAMINE HYDROCHLORIDE
     Indication: PREMEDICATION
     Route: 048
     Dates: start: 20180514
  4. LEVOTHYROXINE. [Concomitant]
     Active Substance: LEVOTHYROXINE
     Route: 065
  5. RITUXAN [Suspect]
     Active Substance: RITUXIMAB
     Indication: RHEUMATOID ARTHRITIS
     Dosage: PREVIOUS RITUXIMAB INFUSION: 21/MAR/2019
     Route: 042
     Dates: start: 20180514
  6. METHYLPREDNISOLONE. [Concomitant]
     Active Substance: METHYLPREDNISOLONE
     Indication: PREMEDICATION
     Route: 042
     Dates: start: 20180514
  7. SPIRIVA [Concomitant]
     Active Substance: TIOTROPIUM BROMIDE MONOHYDRATE
     Route: 045
  8. ACETAMINOPHEN. [Concomitant]
     Active Substance: ACETAMINOPHEN
     Indication: PREMEDICATION
     Route: 048
     Dates: start: 20180514
  9. PREDNISONE. [Concomitant]
     Active Substance: PREDNISONE
  10. VOLTAREN [DICLOFENAC] [Concomitant]
     Active Substance: DICLOFENAC SODIUM
     Dosage: GEL
     Route: 065
  11. TYLENOL [Concomitant]
     Active Substance: ACETAMINOPHEN

REACTIONS (12)
  - Joint swelling [Unknown]
  - Synovitis [Unknown]
  - Joint contracture [Unknown]
  - Malaise [Not Recovered/Not Resolved]
  - Rheumatoid nodule [Unknown]
  - Bursitis [Unknown]
  - Arthropathy [Recovered/Resolved]
  - Synovial disorder [Unknown]
  - Arthralgia [Unknown]
  - Joint effusion [Unknown]
  - Arthropathy [Unknown]
  - Ocular toxicity [Unknown]

NARRATIVE: CASE EVENT DATE: 20181127
